FAERS Safety Report 8845741 (Version 2)
Quarter: 2012Q4

REPORT INFORMATION
  Report Type: 
  Country: US (occurrence: US)
  Receive Date: 20121017
  Receipt Date: 20121210
  Transmission Date: 20130627
  Serious: Yes (Death, Hospitalization)
  Sender: FDA-Public Use
  Company Number: US-GILEAD-2012-0063028

PATIENT
  Age: 54 Year
  Sex: Male

DRUGS (32)
  1. LETAIRIS [Suspect]
     Indication: PULMONARY HYPERTENSION
     Dosage: 10 mg, UNK
     Route: 048
     Dates: start: 20111214, end: 20121006
  2. LETAIRIS [Suspect]
     Indication: EMBOLISM
  3. ALBUTEROL                          /00139501/ [Concomitant]
  4. AZITHROMYCIN [Concomitant]
  5. CEFTRIAXONE [Concomitant]
  6. CISATRACURIUM BESILATE [Concomitant]
  7. DOPAMINE [Concomitant]
  8. INSULIN ASPART [Concomitant]
  9. IPRATROPIUM [Concomitant]
  10. MINERAL OIL EMULSION [Concomitant]
  11. NOREPINEPHRINE [Concomitant]
  12. OMEPRAZOLE [Concomitant]
  13. PHENYLEPHRINE [Concomitant]
  14. POTASSIUM CHLORIDE [Concomitant]
  15. PREDNISONE [Concomitant]
  16. PROPOFOL [Concomitant]
  17. SODIUM BICARBONATE [Concomitant]
  18. TADALAFIL [Concomitant]
  19. VASOPRESSIN [Concomitant]
  20. BUDESONIDE [Concomitant]
  21. CLOTRIMAZOLE [Concomitant]
  22. DIGOXIN [Concomitant]
  23. DOCUSATE SODIUM [Concomitant]
  24. FUROSEMIDE [Concomitant]
  25. MENTHOL W/METHYL SALICYLATE [Concomitant]
  26. NICOTINE                           /01033302/ [Concomitant]
  27. SILDENAFIL CITRATE [Concomitant]
  28. SODIUM CHLORIDE [Concomitant]
  29. SPIRONOLACTONE [Concomitant]
  30. TIOTROPIUM [Concomitant]
  31. WARFARIN [Concomitant]
  32. OXYGEN [Concomitant]

REACTIONS (3)
  - Acute respiratory failure [Fatal]
  - Multi-organ failure [Fatal]
  - Shock [Fatal]
